FAERS Safety Report 10257147 (Version 2)
Quarter: 2014Q3

REPORT INFORMATION
  Report Type: Spontaneous
  Country: FR (occurrence: FR)
  Receive Date: 20140625
  Receipt Date: 20140924
  Transmission Date: 20150326
  Serious: Yes (Other)
  Sender: FDA-Public Use
  Company Number: FR-ROCHE-1422942

PATIENT
  Age: 32 Year
  Sex: Male

DRUGS (15)
  1. CLOZAPINE. [Suspect]
     Active Substance: CLOZAPINE
     Indication: PRODUCT USED FOR UNKNOWN INDICATION
     Dosage: SCORED TABLET
     Route: 048
     Dates: start: 201403, end: 201404
  2. VALIUM [Suspect]
     Active Substance: DIAZEPAM
     Indication: PSYCHOTIC DISORDER
     Dosage: 1% ORAL SOLUTION, DROP
     Route: 048
     Dates: start: 201402
  3. LANSOYL [Concomitant]
     Active Substance: MINERAL OIL
  4. UVEDOSE [Concomitant]
     Active Substance: CHOLECALCIFEROL
  5. LAMOTRIGINE. [Suspect]
     Active Substance: LAMOTRIGINE
     Route: 065
     Dates: start: 20140418
  6. TERCIAN [Suspect]
     Active Substance: CYAMEMAZINE
     Indication: PRODUCT USED FOR UNKNOWN INDICATION
     Dosage: 40 MG/ML ORAL SOLUTION IN DROP
     Route: 048
     Dates: start: 201403
  7. IMOVANE [Suspect]
     Active Substance: ZOPICLONE
     Indication: PRODUCT USED FOR UNKNOWN INDICATION
     Dosage: 7.5 MG,  SCORED COATED-FILM TABLET
     Route: 048
     Dates: end: 201404
  8. LAMOTRIGINE. [Suspect]
     Active Substance: LAMOTRIGINE
     Route: 065
     Dates: start: 20140403
  9. LAMOTRIGINE. [Suspect]
     Active Substance: LAMOTRIGINE
     Route: 065
     Dates: start: 20140527, end: 20140604
  10. LAMOTRIGINE. [Suspect]
     Active Substance: LAMOTRIGINE
     Route: 065
     Dates: start: 20140502
  11. LAMOTRIGINE. [Suspect]
     Active Substance: LAMOTRIGINE
     Route: 065
     Dates: start: 20140513
  12. THERALENE (FRANCE) [Suspect]
     Active Substance: TRIMEPRAZINE
     Indication: PRODUCT USED FOR UNKNOWN INDICATION
     Dosage: 4 % ORAL SOLUTION IN DROP
     Route: 048
     Dates: start: 201403, end: 201404
  13. LEPTICUR [Concomitant]
     Active Substance: TROPATEPINE HYDROCHLORIDE
  14. LAMOTRIGINE. [Suspect]
     Active Substance: LAMOTRIGINE
     Indication: PRODUCT USED FOR UNKNOWN INDICATION
     Dosage: DISPERSIBLE TABLET
     Route: 048
     Dates: start: 201404
  15. LAMOTRIGINE. [Suspect]
     Active Substance: LAMOTRIGINE
     Route: 065
     Dates: start: 20140411

REACTIONS (4)
  - Dermatitis bullous [Unknown]
  - Alopecia [Unknown]
  - C-reactive protein increased [Recovered/Resolved]
  - White blood cell count increased [Recovered/Resolved]

NARRATIVE: CASE EVENT DATE: 201405
